FAERS Safety Report 18089868 (Version 1)
Quarter: 2020Q3

REPORT INFORMATION
  Report Type: Report from Study
  Country: US (occurrence: DE)
  Receive Date: 20200729
  Receipt Date: 20200729
  Transmission Date: 20201103
  Serious: Yes (Other)
  Sender: FDA-Public Use
  Company Number: DE-ELI_LILLY_AND_COMPANY-DE202004011913

PATIENT
  Sex: Female
  Weight: 97 kg

DRUGS (4)
  1. SELPERCATINIB. [Suspect]
     Active Substance: SELPERCATINIB
     Dosage: 80 UNK
     Route: 065
     Dates: start: 20200513
  2. SELPERCATINIB. [Suspect]
     Active Substance: SELPERCATINIB
     Indication: PRODUCT USED FOR UNKNOWN INDICATION
     Dosage: 80 MG, BID
     Route: 065
     Dates: start: 20200217
  3. SELPERCATINIB. [Suspect]
     Active Substance: SELPERCATINIB
     Dosage: 240 MG, DAILY
     Route: 065
     Dates: start: 20200317
  4. TORASEMID [Concomitant]
     Active Substance: TORSEMIDE
     Indication: HYPERTENSION
     Dosage: 5 MG, UNKNOWN
     Route: 065
     Dates: start: 20200415

REACTIONS (9)
  - Hypercalcaemia [Not Recovered/Not Resolved]
  - Rash [Recovered/Resolved]
  - Gamma-glutamyltransferase increased [Unknown]
  - Hypertension [Recovered/Resolved]
  - Aspartate aminotransferase increased [Recovered/Resolved]
  - Lymphopenia [Unknown]
  - Blood creatinine increased [Unknown]
  - Blood alkaline phosphatase increased [Unknown]
  - Oedema peripheral [Unknown]

NARRATIVE: CASE EVENT DATE: 20200225
